FAERS Safety Report 4974395-4 (Version None)
Quarter: 2006Q2

REPORT INFORMATION
  Report Type: 
  Country: None (occurrence: None)
  Receive Date: 20060417
  Receipt Date: 20050401
  Transmission Date: 20061013
  Serious: Yes (Other)
  Sender: FDA-Public Use
  Company Number: DE-BRISTOL-MYERS SQUIBB COMPANY-13329156

PATIENT
  Age: 54 Year
  Sex: Male

DRUGS (17)
  1. REYATAZ [Suspect]
     Indication: HIV INFECTION
     Dosage: DOSING: MAR/APR-1998 400 MG DAILY; APR-1998 600 MG DAILY
  2. SUSTIVA [Suspect]
     Indication: HIV INFECTION
     Dosage: DOSAGE: JUL-1997 TO 1998; MAR/APR-1998 600 MG DAILY
     Dates: start: 19970701
  3. ZERIT [Suspect]
     Indication: HIV INFECTION
     Dates: start: 19970301, end: 19970701
  4. VIDEX [Suspect]
     Indication: HIV INFECTION
     Dosage: DOSING: MAR-1997 TO JUL-1997 400 MG; APR-1998
     Dates: start: 19970301
  5. NEVIRAPINE [Concomitant]
     Indication: HIV INFECTION
     Dates: start: 19970301, end: 19970701
  6. LAMIVUDINE + ZIDOVUDINE [Concomitant]
     Indication: HIV INFECTION
     Dosage: DOSING: JUL-1997 TO 1998; JAN/MAR-1998
  7. LOPINAVIR [Concomitant]
     Indication: HIV INFECTION
     Dosage: DOSING: JAN/MAR-1998
  8. RITONAVIR [Concomitant]
     Indication: HIV INFECTION
     Dosage: DOSING: JAN/MAR-1998; APR-1998 100MG
  9. TENOFOVIR [Concomitant]
     Indication: HIV INFECTION
     Dosage: DOSING: MAR/APR-1998; APR-1998
  10. EMTRICITABINE [Concomitant]
     Indication: HIV INFECTION
     Dosage: DOSING: MAR/APR-1998
  11. ABACAVIR [Concomitant]
     Indication: HIV INFECTION
     Dates: start: 19980401
  12. ACETYLSALICYLIC ACID SRT [Concomitant]
     Dates: start: 19970301
  13. ACE INHIBITOR [Concomitant]
  14. SALMETEROL XINAFOATE+FLUTICASONE PROP [Concomitant]
     Dates: start: 19970301
  15. RIFABUTIN [Concomitant]
     Indication: TUBERCULOSIS
     Dosage: STANDARD DOSE
     Dates: start: 19980301
  16. ISONIAZID [Concomitant]
     Indication: TUBERCULOSIS
     Dosage: STANDARD DOSE
     Dates: start: 19980301
  17. ETHAMBUTOL HYDROCHLORIDE [Concomitant]
     Indication: TUBERCULOSIS
     Dosage: STANDARD DOSE
     Dates: start: 19980301

REACTIONS (10)
  - ANOREXIA [None]
  - DIARRHOEA [None]
  - FATIGUE [None]
  - GENERAL PHYSICAL HEALTH DETERIORATION [None]
  - LIPODYSTROPHY ACQUIRED [None]
  - LOW DENSITY LIPOPROTEIN INCREASED [None]
  - NIGHTMARE [None]
  - PAIN IN EXTREMITY [None]
  - TRANSAMINASES INCREASED [None]
  - TUBERCULOSIS [None]
